FAERS Safety Report 16923457 (Version 1)
Quarter: 2019Q4

REPORT INFORMATION
  Report Type: Spontaneous
  Country: US (occurrence: US)
  Receive Date: 20191016
  Receipt Date: 20191016
  Transmission Date: 20200122
  Serious: No
  Sender: FDA-Public Use
  Company Number: US-AUROBINDO-AUR-APL-2019-031072

PATIENT

DRUGS (2)
  1. CLINDAMYCIN HYDROCHLORIDE CAPSULES USP 150 MG [Suspect]
     Active Substance: CLINDAMYCIN HYDROCHLORIDE
     Indication: POSTOPERATIVE CARE
     Dosage: 3 DOSAGE FORM (03 TABLETS EVERY 06 HOURS)
     Route: 065
     Dates: start: 20190515, end: 20190521
  2. GABAPENTIN. [Concomitant]
     Active Substance: GABAPENTIN
     Indication: PRODUCT USED FOR UNKNOWN INDICATION
     Dosage: UNK
     Route: 065

REACTIONS (1)
  - Rash [Not Recovered/Not Resolved]

NARRATIVE: CASE EVENT DATE: 20190517
